FAERS Safety Report 7972969-X (Version None)
Quarter: 2011Q4

REPORT INFORMATION
  Report Type: 
  Country: None (occurrence: None)
  Receive Date: 20111213
  Receipt Date: 20111209
  Transmission Date: 20120403
  Serious: Yes (Other)
  Sender: FDA-Public Use
  Company Number: US-PFIZER INC-2011301197

PATIENT
  Sex: Female
  Weight: 81.633 kg

DRUGS (7)
  1. LYRICA [Suspect]
     Indication: FIBROMYALGIA
     Dosage: 150 MG, 2X/DAY
     Route: 048
     Dates: start: 20111001
  2. LYRICA [Suspect]
     Indication: MIGRAINE
  3. INDERAL [Suspect]
     Indication: MIGRAINE
     Dosage: 80 MG, 2X/DAY
     Dates: end: 20110101
  4. TOPAMAX [Suspect]
     Indication: MIGRAINE
     Dosage: 150 MG IN MORNING AND 100 MG IN EVENING
     Dates: end: 20110101
  5. INDERAL [Suspect]
     Dosage: UNK DOSE, TWO TIMES A DAY
     Dates: start: 20110101
  6. TOPAMAX [Suspect]
     Dosage: UNK DOSE, TWO TIMES A DAY
     Dates: start: 20110101
  7. LEVOXYL [Concomitant]
     Indication: THYROID DISORDER
     Dosage: 125 UG, DAILY

REACTIONS (4)
  - BLOOD CREATININE INCREASED [None]
  - OEDEMA PERIPHERAL [None]
  - GAIT DISTURBANCE [None]
  - BALANCE DISORDER [None]
